FAERS Safety Report 8577385-8 (Version None)
Quarter: 2012Q3

REPORT INFORMATION
  Report Type: 
  Country: None (occurrence: None)
  Receive Date: 20120725
  Receipt Date: 20120709
  Transmission Date: 20120928
  Serious: Yes (Death)
  Sender: FDA-Public Use
  Company Number: TCI2012A03739

PATIENT

DRUGS (4)
  1. GASTROM (ECABET MONOSODIUM) [Concomitant]
  2. CILOSTAZOL [Concomitant]
  3. CALTAN (CALCIUM CARBONATE) [Concomitant]
  4. LANSOPRAZOLE [Suspect]
     Indication: GASTROOESOPHAGEAL REFLUX DISEASE
     Dosage: PER ORAL
     Route: 048

REACTIONS (2)
  - DIARRHOEA [None]
  - PRURITUS [None]
